FAERS Safety Report 17678174 (Version 2)
Quarter: 2020Q2

REPORT INFORMATION
  Report Type: Spontaneous
  Country: US (occurrence: US)
  Receive Date: 20200417
  Receipt Date: 20200420
  Transmission Date: 20200714
  Serious: Yes (Other)
  Sender: FDA-Public Use
  Company Number: US-JNJFOC-20200413482

PATIENT
  Sex: Female

DRUGS (1)
  1. CHILDRENS TYLENOL DISSOLVE PACKS, WILD BERRY FLAVOR [Suspect]
     Active Substance: ACETAMINOPHEN
     Indication: PRODUCT USED FOR UNKNOWN INDICATION
     Route: 048

REACTIONS (2)
  - Choking [Unknown]
  - Cough [Recovering/Resolving]
